FAERS Safety Report 4749865-4 (Version None)
Quarter: 2005Q3

REPORT INFORMATION
  Report Type: 
  Country: None (occurrence: None)
  Receive Date: 20050818
  Receipt Date: 20050812
  Transmission Date: 20060218
  Serious: Yes (Hospitalization)
  Sender: FDA-Public Use
  Company Number: 2005-06-1173

PATIENT
  Age: 52 Year
  Sex: Female
  Weight: 53.0709 kg

DRUGS (7)
  1. PEG-INTRON [Suspect]
     Indication: HEPATITIS C
     Dosage: 80 MCG QWK SUBCUTANEOUS
     Route: 058
     Dates: start: 20040816, end: 20050616
  2. RIBAVIRIN [Suspect]
     Indication: HEPATITIS C
     Dosage: 1000 MG QD ORAL
     Route: 048
     Dates: start: 20040816, end: 20050616
  3. PREVACID [Concomitant]
  4. BISACODYL [Concomitant]
  5. FIBER DIETARY 'METAFIEBER' [Concomitant]
  6. TYLENOL [Concomitant]
  7. DOXYCYCLINE [Concomitant]

REACTIONS (9)
  - ALOPECIA [None]
  - ASTHENIA [None]
  - BALANCE DISORDER [None]
  - CONJUNCTIVITIS [None]
  - DIZZINESS [None]
  - GLAUCOMA [None]
  - RASH PRURITIC [None]
  - TINNITUS [None]
  - WEIGHT DECREASED [None]
